FAERS Safety Report 6022845-7 (Version None)
Quarter: 2008Q4

REPORT INFORMATION
  Report Type: 
  Country: None (occurrence: None)
  Receive Date: 20081230
  Receipt Date: 20080408
  Transmission Date: 20090506
  Serious: No
  Sender: FDA-Public Use
  Company Number: US-ABBOTT-08P-163-0446009-00

PATIENT
  Age: 1 Year
  Sex: Male

DRUGS (2)
  1. CEFDINIR [Suspect]
     Indication: EAR INFECTION
  2. ANTIBIOTICS [Suspect]
     Indication: EAR INFECTION

REACTIONS (6)
  - CONTUSION [None]
  - DERMATITIS DIAPER [None]
  - DIARRHOEA [None]
  - DYSPNOEA [None]
  - NASAL CONGESTION [None]
  - RHINORRHOEA [None]
